FAERS Safety Report 19974389 (Version 1)
Quarter: 2021Q4

REPORT INFORMATION
  Report Type: Spontaneous
  Country: US (occurrence: US)
  Receive Date: 20211020
  Receipt Date: 20211020
  Transmission Date: 20220303
  Serious: Yes (Hospitalization, Other)
  Sender: FDA-Public Use
  Company Number: US-ELI_LILLY_AND_COMPANY-US202110004840

PATIENT
  Sex: Female

DRUGS (1)
  1. HUMALOG [Suspect]
     Active Substance: INSULIN LISPRO
     Indication: Type 2 diabetes mellitus
     Dosage: 20 U, TID (15-20 UNITS WITH EACH OF 3 MEALS A DAY)
     Route: 058

REACTIONS (5)
  - Cerebrovascular accident [Not Recovered/Not Resolved]
  - Basilar artery occlusion [Unknown]
  - Visual field defect [Not Recovered/Not Resolved]
  - Inflammation [Not Recovered/Not Resolved]
  - Glycosylated haemoglobin increased [Recovered/Resolved]

NARRATIVE: CASE EVENT DATE: 20180101
